FAERS Safety Report 8364141-9 (Version None)
Quarter: 2012Q2

REPORT INFORMATION
  Report Type: 
  Country: None (occurrence: None)
  Receive Date: 20120516
  Receipt Date: 20120508
  Transmission Date: 20120825
  Serious: Yes (Other)
  Sender: FDA-Public Use
  Company Number: US-JNJFOC-20120510935

PATIENT

DRUGS (17)
  1. FLAVOPIRIDOL [Suspect]
     Route: 042
  2. DOXORUBICIN HCL [Suspect]
     Route: 042
  3. DOXORUBICIN HCL [Suspect]
     Route: 042
  4. DOXORUBICIN HCL [Suspect]
     Indication: SARCOMATOSIS
     Route: 042
  5. DOXORUBICIN HCL [Suspect]
     Route: 042
  6. DOXORUBICIN HCL [Suspect]
     Route: 042
  7. FLAVOPIRIDOL [Suspect]
     Route: 042
  8. FLAVOPIRIDOL [Suspect]
     Route: 042
  9. DOXORUBICIN HCL [Suspect]
     Route: 042
  10. FLAVOPIRIDOL [Suspect]
     Dosage: 50 MG VIA INTRAVENOUS BOLUS AND 40 MG VIA INTRAVENOUS INFUSION
     Route: 042
  11. DOXORUBICIN HCL [Suspect]
     Route: 042
  12. FLAVOPIRIDOL [Suspect]
     Dosage: 40 MG VIA INTRAVENOUS BOLUS AND 30 MG VIA INTRAVENOUS INFUSION
     Route: 042
  13. FLAVOPIRIDOL [Suspect]
     Route: 042
  14. DEXRAZOXANE HYDROCHLORIDE [Concomitant]
     Route: 041
  15. DOXORUBICIN HCL [Suspect]
     Route: 042
  16. FLAVOPIRIDOL [Suspect]
     Indication: SARCOMATOSIS
     Route: 042
  17. FLAVOPIRIDOL [Suspect]
     Dosage: 50 MG VIA INTRAVENOUS BOLUS AND 30 MG VIA  INTRAVENOUS INFUSION
     Route: 042

REACTIONS (5)
  - THROMBOCYTOPENIA [None]
  - NEUTROPENIA [None]
  - LEUKOPENIA [None]
  - LYMPHOPENIA [None]
  - OFF LABEL USE [None]
